FAERS Safety Report 18986410 (Version 1)
Quarter: 2021Q1

REPORT INFORMATION
  Report Type: Spontaneous
  Country: US (occurrence: US)
  Receive Date: 20210308
  Receipt Date: 20210308
  Transmission Date: 20210420
  Serious: Yes (Other)
  Sender: FDA-Public Use
  Company Number: None

PATIENT
  Age: 69 Year
  Sex: Male
  Weight: 82.6 kg

DRUGS (7)
  1. OMEPRAZOLE 20 MG [Concomitant]
     Active Substance: OMEPRAZOLE
     Dates: start: 20201220
  2. ASPIRIN 81 MG CHEWABLE TABLET [Concomitant]
     Dates: start: 20210104
  3. COLACE 250 MG CAPSULE [Concomitant]
     Dates: start: 20210105
  4. TYLENOL [Concomitant]
     Active Substance: ACETAMINOPHEN
     Dates: start: 20201220
  5. TACROLIMUS. [Suspect]
     Active Substance: TACROLIMUS
     Indication: IMMUNOSUPPRESSION
     Route: 048
     Dates: start: 20210104, end: 20210115
  6. SEPTRA DS [Concomitant]
     Active Substance: SULFAMETHOXAZOLE\TRIMETHOPRIM
     Dates: start: 20201221
  7. EVEROLIMUS. [Suspect]
     Active Substance: EVEROLIMUS

REACTIONS (3)
  - Therapy interrupted [None]
  - Proteinuria [None]
  - Mental status changes [None]

NARRATIVE: CASE EVENT DATE: 20210115
